FAERS Safety Report 5415436-X (Version None)
Quarter: 2007Q3

REPORT INFORMATION
  Report Type: 
  Country: None (occurrence: None)
  Receive Date: 20070813
  Receipt Date: 20070813
  Transmission Date: 20080115
  Serious: No
  Sender: FDA-Public Use
  Company Number: None

PATIENT
  Age: 73 Year
  Sex: Male

DRUGS (1)
  1. LISINOPRIL [Suspect]
     Dosage: 40MG EVERY DAY PO
     Route: 048
     Dates: start: 20070418, end: 20070711

REACTIONS (2)
  - COUGH [None]
  - WHEEZING [None]
